FAERS Safety Report 6459055-5 (Version None)
Quarter: 2009Q4

REPORT INFORMATION
  Report Type: 
  Country: None (occurrence: None)
  Receive Date: 20091127
  Receipt Date: 20091027
  Transmission Date: 20100525
  Serious: No
  Sender: FDA-Public Use
  Company Number: US-BAYER-200937689NA

PATIENT
  Age: 18 Year
  Sex: Female

DRUGS (3)
  1. YAZ [Suspect]
     Indication: DRUG USE FOR UNKNOWN INDICATION
     Route: 048
     Dates: end: 20091006
  2. SEANON L [Concomitant]
     Dates: start: 20091006
  3. JOLESSA [Concomitant]
     Dates: start: 20091006

REACTIONS (6)
  - ABDOMINAL DISTENSION [None]
  - CRYING [None]
  - IRRITABILITY [None]
  - MENSTRUAL DISORDER [None]
  - VAGINAL HAEMORRHAGE [None]
  - WEIGHT INCREASED [None]
